FAERS Safety Report 6707741-1 (Version None)
Quarter: 2010Q2

REPORT INFORMATION
  Report Type: 
  Country: None (occurrence: None)
  Receive Date: 20100503
  Receipt Date: 20090504
  Transmission Date: 20101027
  Serious: No
  Sender: FDA-Public Use
  Company Number: US-ASTRAZENECA-2008UW24741

PATIENT
  Age: 17018 Day
  Sex: Female
  Weight: 78 kg

DRUGS (4)
  1. NEXIUM [Suspect]
     Indication: GASTROOESOPHAGEAL REFLUX DISEASE
     Route: 048
     Dates: start: 20080601
  2. ASPIRIN [Concomitant]
  3. BLOOD PRESSURE PILL [Concomitant]
  4. TYLENOL-500 [Concomitant]

REACTIONS (5)
  - BURNING SENSATION [None]
  - DYSPNOEA [None]
  - FLATULENCE [None]
  - MYALGIA [None]
  - ROAD TRAFFIC ACCIDENT [None]
